FAERS Safety Report 6052695-7 (Version None)
Quarter: 2009Q1

REPORT INFORMATION
  Report Type: 
  Country: None (occurrence: None)
  Receive Date: 20090121
  Receipt Date: 20090108
  Transmission Date: 20090719
  Serious: Yes (Hospitalization)
  Sender: FDA-Public Use
  Company Number: 2009-189289-NL

PATIENT
  Sex: Female

DRUGS (2)
  1. FSH [Suspect]
     Indication: OVARIAN DISORDER
     Dosage: 75-225 MIU/D, AND ADJUSTED TO A TAPERED, OR STEP-DOWN, PROTOCOL
  2. CHORIONIC GONADOTROPIN [Suspect]
     Indication: OVARIAN DISORDER

REACTIONS (2)
  - OVARIAN HYPERSTIMULATION SYNDROME [None]
  - OVARIAN TORSION [None]
